FAERS Safety Report 7743493-4 (Version None)
Quarter: 2011Q3

REPORT INFORMATION
  Report Type: 
  Country: None (occurrence: None)
  Receive Date: 20110912
  Receipt Date: 20110127
  Transmission Date: 20111222
  Serious: No
  Sender: FDA-Public Use
  Company Number: US-ABBOTT-10P-163-0692225-00

PATIENT
  Sex: Female

DRUGS (2)
  1. KEPPRA [Concomitant]
     Indication: CONVULSION
  2. DEPAKOTE [Suspect]
     Indication: CONVULSION
     Dosage: 3 CAPSULES IN MORNING 2 CAUPLES IN EVENING
     Route: 048

REACTIONS (2)
  - CAPSULE PHYSICAL ISSUE [None]
  - DRUG LEVEL INCREASED [None]
